FAERS Safety Report 20785086 (Version 1)
Quarter: 2022Q2

REPORT INFORMATION
  Report Type: Spontaneous
  Country: US (occurrence: None)
  Receive Date: 20220504
  Receipt Date: 20220504
  Transmission Date: 20220721
  Serious: No
  Sender: FDA-Public Use
  Company Number: None

PATIENT
  Age: 68 Year
  Sex: Female

DRUGS (2)
  1. CYCLOPENTOLATE [Suspect]
     Active Substance: CYCLOPENTOLATE
     Indication: Retinal degeneration
     Dosage: OTHER FREQUENCY : ONCE;?
     Route: 047
     Dates: start: 20220426, end: 20220426
  2. CYCLOPENTOLATE [Suspect]
     Active Substance: CYCLOPENTOLATE
     Indication: Retinal tear

REACTIONS (2)
  - Mydriasis [None]
  - Accommodation disorder [None]

NARRATIVE: CASE EVENT DATE: 20220426
